FAERS Safety Report 8156978-6 (Version None)
Quarter: 2012Q1

REPORT INFORMATION
  Report Type: 
  Country: None (occurrence: None)
  Receive Date: 20120103
  Receipt Date: 20111003
  Transmission Date: 20120608
  Serious: No
  Sender: FDA-Public Use
  Company Number: AE-2011-002037

PATIENT
  Age: 55 Year
  Sex: Female
  Weight: 72.5755 kg

DRUGS (8)
  1. SEROQUEL [Concomitant]
  2. INCIVEK [Suspect]
     Dosage: 2250 MG (750 MG,1 IN 8 HR) , ORAL
     Route: 048
     Dates: start: 20110805, end: 20111002
  3. DILANTIN [Concomitant]
  4. CYMBALTA [Concomitant]
  5. TOPAMAX [Concomitant]
  6. PEGASYS [Concomitant]
  7. TRAZODONE HCL [Concomitant]
  8. RIBAPAK(RIBAVIRIN) [Concomitant]

REACTIONS (8)
  - RECTAL HAEMORRHAGE [None]
  - CONVULSION [None]
  - NAUSEA [None]
  - SOMNOLENCE [None]
  - RECTAL PROLAPSE [None]
  - INCORRECT DOSE ADMINISTERED [None]
  - ANORECTAL INFECTION [None]
  - DRUG DOSE OMISSION [None]
